FAERS Safety Report 21033797 (Version 7)
Quarter: 2022Q3

REPORT INFORMATION
  Report Type: Report from Study
  Country: AU (occurrence: AU)
  Receive Date: 20220701
  Receipt Date: 20220909
  Transmission Date: 20221026
  Serious: Yes (Hospitalization)
  Sender: FDA-Public Use
  Company Number: AU-GLAXOSMITHKLINE-AU2022GSK100017

PATIENT

DRUGS (24)
  1. BELANTAMAB MAFODOTIN [Suspect]
     Active Substance: BELANTAMAB MAFODOTIN
     Indication: Plasma cell myeloma
     Dosage: 2.5 TO 1.9 MG/KG, CYC (START DATE 21-SEP-2021 AND STOP DATE 14-JUN-2022)
     Route: 042
     Dates: start: 20210921, end: 20220614
  2. BORTEZOMIB [Suspect]
     Active Substance: BORTEZOMIB
     Indication: Plasma cell myeloma
     Dosage: 20 MG/ML, IN 1.5 ML VIAL Z
     Route: 042
     Dates: start: 20210921
  3. ZOMETA [Concomitant]
     Active Substance: ZOLEDRONIC ACID
     Indication: Bone disorder
     Dosage: 5 MG, PRN
     Route: 042
     Dates: start: 202109
  4. METFORMIN HYDROCHLORIDE [Concomitant]
     Active Substance: METFORMIN HYDROCHLORIDE
     Indication: Diabetes mellitus
     Dosage: 1000 MG, QD
     Route: 048
     Dates: start: 20200428
  5. RAMIPRIL [Concomitant]
     Active Substance: RAMIPRIL
     Indication: Hypertension
     Dosage: 2.5 MG, QD
     Route: 048
     Dates: start: 20200428
  6. JANUVIA [Concomitant]
     Active Substance: SITAGLIPTIN PHOSPHATE
     Indication: Diabetes mellitus
     Dosage: 100 MG, QD
     Route: 048
     Dates: start: 20200428
  7. FERRO-TAB [Concomitant]
     Indication: Mineral supplementation
     Dosage: 200 MG, QD
     Route: 048
     Dates: start: 20210105
  8. VITAMIN C [Concomitant]
     Active Substance: ASCORBIC ACID
     Indication: Prophylaxis
     Dosage: 1 DF, QD
     Route: 048
     Dates: start: 20210805
  9. OPTISULIN SOLOSTAR (INSULIN GLARGINE) [Concomitant]
     Indication: Diabetes mellitus
     Dosage: 100 INTERNATIONAL UNITS PER MILILITRE PRN
     Route: 058
     Dates: start: 20210105
  10. ALLOPURINOL [Concomitant]
     Active Substance: ALLOPURINOL
     Indication: Metabolic disorder prophylaxis
     Dosage: 300 MG, QD
     Route: 048
     Dates: start: 20211001
  11. SULFAMETHOXAZOLE\TRIMETHOPRIM [Concomitant]
     Active Substance: SULFAMETHOXAZOLE\TRIMETHOPRIM
     Indication: Pneumocystis jirovecii pneumonia
     Dosage: 160 MG, 3 TIMES PER WE
     Route: 048
     Dates: start: 20211012
  12. AMLODIPINE [Concomitant]
     Active Substance: AMLODIPINE BESYLATE
     Indication: Hypertension
     Dosage: 5 MG, PRN
     Route: 048
     Dates: start: 20211102
  13. AMLODIPINE [Concomitant]
     Active Substance: AMLODIPINE BESYLATE
     Dosage: 5 MG, QD
     Route: 048
     Dates: start: 20211109, end: 20220328
  14. AMLODIPINE [Concomitant]
     Active Substance: AMLODIPINE BESYLATE
     Dosage: 5 MG, QD
     Route: 048
     Dates: start: 20220406
  15. FLUOROMETHOLONE [Concomitant]
     Active Substance: FLUOROMETHOLONE
     Indication: Prophylaxis
     Dosage: 1 DROPS PRN
     Route: 047
     Dates: start: 20211123
  16. PREGABALIN [Concomitant]
     Active Substance: PREGABALIN
     Indication: Neuropathy peripheral
     Dosage: 75 MG, TID
     Route: 048
     Dates: start: 20211216
  17. LOPERAMIDE [Concomitant]
     Active Substance: LOPERAMIDE
     Indication: Diarrhoea
     Dosage: 2 MG, PRN
     Route: 048
     Dates: start: 20211211
  18. OXYCODONE HYDROCHLORIDE [Concomitant]
     Active Substance: OXYCODONE HYDROCHLORIDE
     Indication: Pain in extremity
     Dosage: 5 MG, PRN
     Route: 048
     Dates: start: 20211213
  19. PANTOPRAZOLE [Concomitant]
     Active Substance: PANTOPRAZOLE
     Indication: Product used for unknown indication
     Dosage: 40 MG, QD
     Route: 048
     Dates: start: 20211216
  20. TARGIN (NALOXON + OXYCODON) [Concomitant]
     Indication: Pain
     Dosage: 7.5 MG, BID
     Route: 048
     Dates: start: 20211223, end: 20220328
  21. TARGIN (NALOXON + OXYCODON) [Concomitant]
     Dosage: 7.5 MG, BID
     Route: 048
     Dates: start: 20220406
  22. PAXLOVID [Concomitant]
     Active Substance: NIRMATRELVIR\RITONAVIR
     Indication: COVID-19
     Dosage: 100 MG, BID
     Route: 048
     Dates: start: 20220328, end: 20220402
  23. ASPIRIN [Concomitant]
     Active Substance: ASPIRIN
     Indication: Product used for unknown indication
     Dosage: 100 MG, QD
     Route: 048
  24. DEXAMETHASONE [Suspect]
     Active Substance: DEXAMETHASONE

REACTIONS (3)
  - Abscess limb [Recovered/Resolved with Sequelae]
  - Abscess limb [Recovered/Resolved]
  - Abscess limb [Recovered/Resolved]

NARRATIVE: CASE EVENT DATE: 20220629
